FAERS Safety Report 5380560-7 (Version None)
Quarter: 2007Q3

REPORT INFORMATION
  Report Type: 
  Country: None (occurrence: None)
  Receive Date: 20070703
  Receipt Date: 20070620
  Transmission Date: 20080115
  Serious: Yes (Hospitalization)
  Sender: FDA-Public Use
  Company Number: 2007-160359-NL

PATIENT
  Age: 80 Year
  Sex: Female

DRUGS (6)
  1. MIRTAZAPINE [Suspect]
     Dosage: 15 MG
  2. GALANTAMINE HYDROBROMIDE [Concomitant]
  3. ISRADIPINE [Concomitant]
  4. PARACETAMOL [Concomitant]
  5. FOLIC ACID [Concomitant]
  6. VITAMIN B-12 [Concomitant]

REACTIONS (1)
  - TORSADE DE POINTES [None]
